FAERS Safety Report 10257092 (Version 1)
Quarter: 2014Q2

REPORT INFORMATION
  Report Type: Report from Study
  Country: US (occurrence: US)
  Receive Date: 20140625
  Receipt Date: 20140625
  Transmission Date: 20141212
  Serious: Yes (Other)
  Sender: FDA-Public Use
  Company Number: US-ROCHE-1423171

PATIENT
  Sex: Female
  Weight: 90.5 kg

DRUGS (2)
  1. NUTROPIN AQ [Suspect]
     Indication: PRODUCT USED FOR UNKNOWN INDICATION
     Route: 065
  2. ALDACTONE (UNITED STATES) [Concomitant]

REACTIONS (2)
  - Failure to thrive [Unknown]
  - Increased appetite [Unknown]
